FAERS Safety Report 5735851-4 (Version None)
Quarter: 2008Q2

REPORT INFORMATION
  Report Type: 
  Country: None (occurrence: None)
  Receive Date: 20080509
  Receipt Date: 20080428
  Transmission Date: 20081010
  Serious: Yes (Other)
  Sender: FDA-Public Use
  Company Number: 2008SP007941

PATIENT
  Age: 18 Year
  Sex: Female

DRUGS (1)
  1. CORICIDIN                        (ACTIVES UNKNOWN) [Suspect]
     Indication: DRUG ABUSE
     Dosage: PO
     Route: 048

REACTIONS (2)
  - DRUG ABUSE [None]
  - DRUG DEPENDENCE [None]
